FAERS Safety Report 9303406 (Version 2)
Quarter: 2013Q2

REPORT INFORMATION
  Report Type: Spontaneous
  Country: US (occurrence: US)
  Receive Date: 20130522
  Receipt Date: 20130530
  Transmission Date: 20140414
  Serious: Yes (Death, Hospitalization)
  Sender: FDA-Public Use
  Company Number: US-GILEAD-2012-0065691

PATIENT
  Age: 24 Year
  Sex: Male

DRUGS (1)
  1. LETAIRIS [Suspect]
     Indication: PULMONARY HYPERTENSION
     Dosage: UNK UNK, QD
     Route: 048
     Dates: start: 200808, end: 20121218

REACTIONS (2)
  - Embolism [Fatal]
  - Fluid retention [Unknown]
